FAERS Safety Report 8088992 (Version 4)
Quarter: 2013Q4

REPORT INFORMATION
  Report Type: Report from Study
  Country: CA (occurrence: CA)
  Receive Date: 20110812
  Receipt Date: 20131106
  Transmission Date: 20140711
  Serious: Yes (Other)
  Sender: FDA-Public Use
  Company Number: PHHY2011CA70704

PATIENT
  Age: 78 Year
  Sex: Female

DRUGS (24)
  1. ACLASTA [Suspect]
     Indication: OSTEOPOROSIS
     Dosage: 5 MG, YEARLY
     Route: 042
     Dates: start: 20100611
  2. ACLASTA [Suspect]
     Dosage: 5 MG, YEARLY
     Route: 042
     Dates: start: 20110922
  3. ACLASTA [Suspect]
     Dosage: 5 MG, YEARLY
     Route: 042
     Dates: start: 20121023
  4. GOLD [Concomitant]
  5. PREDNISONE [Concomitant]
  6. TYLENOL [Concomitant]
     Dosage: 30 MG, PRN
  7. OXYNEO [Concomitant]
     Dosage: 10 MG, BID
  8. NORTRIPTYLINE [Concomitant]
     Dosage: 2 DF, ONCE DAILY
  9. APO-BISOPROLOL [Concomitant]
     Dosage: 1.5 DF, QD
  10. COVERSYL PLUS                      /01421201/ [Concomitant]
     Dosage: 1 DF, QD
  11. PLAQUENIL [Concomitant]
     Dosage: 1 DF, QD
  12. NITRO-DUR [Concomitant]
     Dosage: 1 DF, QD (1 ON IN AM OFF IN PM)
  13. NITROSPRAY [Concomitant]
     Dosage: UNK UKN, PRN
  14. ASPIRIN [Concomitant]
     Dosage: 81 MG, QD
  15. VITAMIN D3 [Concomitant]
     Dosage: 1000 IU, QD
  16. VITAMIN E [Concomitant]
     Dosage: 2 DF, QD
  17. ACETAMINOPHEN [Concomitant]
     Dosage: UNK UKN, PRN
  18. CENTRUM [Concomitant]
     Dosage: 1 DF, BID
  19. GOLD SODIUM THIOMALATE [Concomitant]
     Dosage: 25 MG, MONTHLY
  20. PANTOPRAZOLE EG [Concomitant]
     Dosage: 1 DF, QD
  21. BENADRYL                           /00647601/ [Concomitant]
     Indication: HYPERSENSITIVITY
     Dosage: UNK UKN, PRN
  22. MAGNESIUM [Concomitant]
     Dosage: 1 DF, QD
  23. LASIX [Concomitant]
     Dosage: UNK UKN, QD
  24. CALCIUM [Concomitant]
     Dosage: UNK UKN, QD

REACTIONS (14)
  - Pneumonia [Unknown]
  - Malaise [Unknown]
  - Pyrexia [Unknown]
  - Monocyte count increased [Unknown]
  - Eosinophil count increased [Unknown]
  - Lymphocyte count decreased [Unknown]
  - White blood cell count increased [Not Recovered/Not Resolved]
  - Neutrophil count increased [Not Recovered/Not Resolved]
  - Musculoskeletal pain [Unknown]
  - Pain in extremity [Unknown]
  - Arthralgia [Unknown]
  - Arthritis [Unknown]
  - Haemoglobin decreased [Unknown]
  - Glomerular filtration rate decreased [Not Recovered/Not Resolved]
